FAERS Safety Report 7880984-X (Version None)
Quarter: 2011Q4

REPORT INFORMATION
  Report Type: 
  Country: None (occurrence: None)
  Receive Date: 20111101
  Receipt Date: 20111026
  Transmission Date: 20120403
  Serious: Yes (Hospitalization, Other)
  Sender: FDA-Public Use
  Company Number: US-MERCK-1110USA01843

PATIENT
  Age: 88 Year
  Sex: Female

DRUGS (5)
  1. FOSAMAX [Suspect]
     Indication: OSTEOPOROSIS
     Route: 048
     Dates: start: 19980901, end: 20010101
  2. FOSAMAX [Suspect]
     Route: 048
     Dates: start: 20020301, end: 20050401
  3. SYNTHROID [Concomitant]
     Indication: HYPOTHYROIDISM
     Route: 065
  4. ALENDRONATE SODIUM [Suspect]
     Indication: OSTEOPOROSIS
     Route: 048
     Dates: start: 20090501
  5. VITAMINS (UNSPECIFIED) [Concomitant]
     Route: 065
     Dates: start: 19900101, end: 20100101

REACTIONS (27)
  - HYPERLIPIDAEMIA [None]
  - OSTEOARTHRITIS [None]
  - ASTHENIA [None]
  - DEHYDRATION [None]
  - HYPERTENSION [None]
  - ALLERGIC SINUSITIS [None]
  - BLISTER [None]
  - GASTROOESOPHAGEAL REFLUX DISEASE [None]
  - ARRHYTHMIA [None]
  - CEREBROVASCULAR ACCIDENT [None]
  - ABASIA [None]
  - MENTAL STATUS CHANGES [None]
  - HIP FRACTURE [None]
  - APPENDIX DISORDER [None]
  - DYSPHAGIA [None]
  - URINARY TRACT INFECTION [None]
  - OSTEOPENIA [None]
  - DIZZINESS [None]
  - ACUTE PRERENAL FAILURE [None]
  - LUMBAR SPINAL STENOSIS [None]
  - DELIRIUM [None]
  - PNEUMONIA [None]
  - CATARACT [None]
  - HAEMORRHAGIC ANAEMIA [None]
  - FALL [None]
  - PARKINSON'S DISEASE [None]
  - MYOCARDIAL INFARCTION [None]
